FAERS Safety Report 10178512 (Version 1)
Quarter: 2014Q2

REPORT INFORMATION
  Report Type: Spontaneous
  Country: US (occurrence: None)
  Receive Date: 20140516
  Receipt Date: 20140516
  Transmission Date: 20141212
  Serious: Yes (Hospitalization)
  Sender: FDA-Public Use
  Company Number: None

PATIENT
  Age: 6 Year
  Sex: Male
  Weight: 22.3 kg

DRUGS (1)
  1. ONCASPAR [Suspect]
     Dates: end: 20140514

REACTIONS (10)
  - Toothache [None]
  - Infusion related reaction [None]
  - Urticaria [None]
  - Lip swelling [None]
  - Eyelid oedema [None]
  - Erythema [None]
  - Erythema [None]
  - Swelling face [None]
  - Vomiting [None]
  - Eye swelling [None]
